FAERS Safety Report 16783719 (Version 9)
Quarter: 2023Q2

REPORT INFORMATION
  Report Type: Report from Study
  Country: BR (occurrence: BR)
  Receive Date: 20190908
  Receipt Date: 20230524
  Transmission Date: 20230722
  Serious: Yes (Hospitalization, Other)
  Sender: FDA-Public Use
  Company Number: BR-BIOGEN-2019BI00782916

PATIENT
  Age: 52 Year
  Sex: Female
  Weight: 58 kg

DRUGS (19)
  1. TYSABRI [Suspect]
     Active Substance: NATALIZUMAB
     Indication: Multiple sclerosis
     Route: 050
     Dates: start: 20140820
  2. TYSABRI [Suspect]
     Active Substance: NATALIZUMAB
     Route: 050
  3. TYSABRI [Suspect]
     Active Substance: NATALIZUMAB
     Route: 050
     Dates: start: 201408
  4. TYSABRI [Suspect]
     Active Substance: NATALIZUMAB
     Route: 050
     Dates: start: 201208
  5. DIPHENHYDRAMINE HYDROCHLORIDE [Suspect]
     Active Substance: DIPHENHYDRAMINE HYDROCHLORIDE
     Indication: Hypersensitivity
     Route: 050
     Dates: start: 201905
  6. DIPHENHYDRAMINE HYDROCHLORIDE [Suspect]
     Active Substance: DIPHENHYDRAMINE HYDROCHLORIDE
     Route: 050
     Dates: start: 2022
  7. ATENOLOL [Concomitant]
     Active Substance: ATENOLOL
     Indication: Hypertension
     Route: 050
     Dates: start: 2010
  8. LOSARTAN [Concomitant]
     Active Substance: LOSARTAN
     Indication: Hypertension
     Route: 050
     Dates: start: 2010
  9. CARBAMAZEPINE [Concomitant]
     Active Substance: CARBAMAZEPINE
     Indication: Pain
     Route: 050
  10. CARBAMAZEPINE [Concomitant]
     Active Substance: CARBAMAZEPINE
     Route: 050
  11. FLUOXETINE HYDROCHLORIDE [Concomitant]
     Active Substance: FLUOXETINE HYDROCHLORIDE
     Indication: Anxiety
     Dosage: 2 TABLETS
     Route: 050
     Dates: start: 2010
  12. FLUOXETINE HYDROCHLORIDE [Concomitant]
     Active Substance: FLUOXETINE HYDROCHLORIDE
     Route: 050
     Dates: start: 2008
  13. CLONAZEPAM [Concomitant]
     Active Substance: CLONAZEPAM
     Indication: Insomnia
     Route: 050
  14. CLONAZEPAM [Concomitant]
     Active Substance: CLONAZEPAM
     Dosage: 2 TABLETS
     Route: 050
  15. CLONAZEPAM [Concomitant]
     Active Substance: CLONAZEPAM
     Dosage: 2 TABLETS
     Route: 050
  16. VITAMIN E [Concomitant]
     Active Substance: .ALPHA.-TOCOPHEROL
     Indication: Product used for unknown indication
     Route: 050
  17. VITAMIN D [Concomitant]
     Active Substance: VITAMIN D NOS
     Indication: Product used for unknown indication
     Route: 050
  18. PREDNISONE [Concomitant]
     Active Substance: PREDNISONE
     Indication: Fatigue
     Route: 050
     Dates: start: 20230413, end: 20230414
  19. LORATADINE [Concomitant]
     Active Substance: LORATADINE
     Indication: Magnetic resonance imaging
     Route: 050
     Dates: start: 20230414, end: 20230414

REACTIONS (40)
  - Drug hypersensitivity [Recovered/Resolved]
  - Pharyngeal haemorrhage [Unknown]
  - Cerebral infarction [Recovered/Resolved]
  - Dry throat [Unknown]
  - Polyuria [Unknown]
  - Incorrect drug administration rate [Not Recovered/Not Resolved]
  - Heart rate increased [Unknown]
  - Pain [Recovered/Resolved]
  - Lacrimation increased [Unknown]
  - Vision blurred [Unknown]
  - Anxiety [Unknown]
  - Nervousness [Unknown]
  - Palpitations [Unknown]
  - Head discomfort [Unknown]
  - Saliva altered [Unknown]
  - Memory impairment [Not Recovered/Not Resolved]
  - Hypoaesthesia [Not Recovered/Not Resolved]
  - Fall [Recovered/Resolved]
  - Sensory loss [Not Recovered/Not Resolved]
  - Contusion [Not Recovered/Not Resolved]
  - Decreased immune responsiveness [Not Recovered/Not Resolved]
  - Influenza like illness [Unknown]
  - Musculoskeletal disorder [Not Recovered/Not Resolved]
  - Joint injury [Unknown]
  - Somnolence [Unknown]
  - Dyspnoea [Unknown]
  - Pain in extremity [Unknown]
  - Peripheral swelling [Unknown]
  - Limb injury [Unknown]
  - Rash macular [Not Recovered/Not Resolved]
  - Visual impairment [Unknown]
  - Diplopia [Unknown]
  - Varicose vein [Unknown]
  - Venous injury [Unknown]
  - Viral infection [Recovered/Resolved]
  - Fatigue [Unknown]
  - Hypersensitivity [Unknown]
  - Vomiting [Unknown]
  - Dizziness [Unknown]
  - Headache [Not Recovered/Not Resolved]

NARRATIVE: CASE EVENT DATE: 20170601
